FAERS Safety Report 5159295-1 (Version None)
Quarter: 2006Q4

REPORT INFORMATION
  Report Type: 
  Country: None (occurrence: None)
  Receive Date: 20061117
  Receipt Date: 20061114
  Transmission Date: 20070319
  Serious: Yes (Hospitalization)
  Sender: FDA-Public Use
  Company Number: HQWYE042101NOV06

PATIENT
  Age: 65 Year
  Sex: Female

DRUGS (4)
  1. ETODOLAC [Suspect]
     Indication: RHEUMATOID ARTHRITIS
     Dosage: 400 MG 1X PER 1 DAY, ORAL
     Route: 048
     Dates: start: 19970901, end: 20040521
  2. PREDNISONE TAB [Suspect]
     Indication: RHEUMATOID ARTHRITIS
     Dosage: 4 MG 1X PER 1 DAY, NASAL
     Route: 045
  3. RHEUMATREX [Suspect]
     Indication: RHEUMATOID ARTHRITIS
     Dosage: 6 MG 1X PER 1 WK, ORAL
     Route: 048
     Dates: start: 19970901, end: 20040521
  4. FAMOTIDINE [Concomitant]

REACTIONS (24)
  - ABDOMINAL ADHESIONS [None]
  - ABSCESS [None]
  - ADHESION [None]
  - ASPIRATION PLEURAL CAVITY ABNORMAL [None]
  - BACK PAIN [None]
  - CANDIDIASIS [None]
  - CHEST PAIN [None]
  - CONDITION AGGRAVATED [None]
  - CULTURE POSITIVE [None]
  - DIAPHRAGMATIC DISORDER [None]
  - FISTULA [None]
  - GASTRIC ULCER PERFORATION [None]
  - GASTROINTESTINAL FISTULA [None]
  - HYPERHIDROSIS [None]
  - MEDIASTINAL DISORDER [None]
  - MUSCULAR WEAKNESS [None]
  - PALLOR [None]
  - PERITONEAL DISORDER [None]
  - PLEURAL EFFUSION [None]
  - PLEURAL FISTULA [None]
  - PNEUMOTHORAX [None]
  - PYOTHORAX [None]
  - RESPIRATORY DISORDER [None]
  - RHEUMATOID ARTHRITIS [None]
